FAERS Safety Report 5925513-2 (Version None)
Quarter: 2008Q4

REPORT INFORMATION
  Report Type: 
  Country: None (occurrence: None)
  Receive Date: 20081021
  Receipt Date: 20081014
  Transmission Date: 20090506
  Serious: Yes (Other)
  Sender: FDA-Public Use
  Company Number: PHHY2008JP23343

PATIENT
  Age: 46 Year
  Sex: Male

DRUGS (9)
  1. GLEEVEC [Suspect]
     Indication: CHRONIC MYELOID LEUKAEMIA
     Dosage: 800 MG/DAILY
     Route: 048
     Dates: start: 20051201, end: 20060101
  2. GLEEVEC [Suspect]
     Indication: BLAST CELL COUNT INCREASED
     Dosage: UNK
  3. VINCRISTINE [Suspect]
     Indication: CHRONIC MYELOID LEUKAEMIA
     Dosage: UNK
     Dates: start: 20051201
  4. VINCRISTINE [Suspect]
     Indication: BLAST CELL COUNT INCREASED
  5. PREDNISOLONE [Suspect]
  6. ENOCITABINE [Concomitant]
     Indication: BLAST CELL COUNT INCREASED
  7. IDARUBICIN HCL [Concomitant]
     Indication: BLAST CELL COUNT INCREASED
  8. MERCAPTOPURINE [Concomitant]
     Indication: BLAST CELL COUNT INCREASED
  9. PSL [Concomitant]

REACTIONS (7)
  - ANAEMIA [None]
  - ASPIRATION BONE MARROW ABNORMAL [None]
  - BLAST CELL COUNT INCREASED [None]
  - BONE MARROW FAILURE [None]
  - BONE MARROW TRANSPLANT [None]
  - NEUTROPHILIA [None]
  - PLATELET COUNT DECREASED [None]
